FAERS Safety Report 21558973 (Version 1)
Quarter: 2022Q4

REPORT INFORMATION
  Report Type: Spontaneous
  Country: NL (occurrence: NL)
  Receive Date: 20221107
  Receipt Date: 20221107
  Transmission Date: 20230113
  Serious: Yes (Other)
  Sender: FDA-Public Use
  Company Number: NL-CELLTRION INC.-2022NL015457

PATIENT

DRUGS (9)
  1. INFLIXIMAB [Suspect]
     Active Substance: INFLIXIMAB
     Indication: Anal fistula
     Dosage: 5 MG/KG EVERY 8 WEEKS AT THE BEGINNING OF TREATMENT.
     Route: 042
  2. INFLIXIMAB [Suspect]
     Active Substance: INFLIXIMAB
     Dosage: 5 MG/KG OF INFLIXIMAB WAS ADMINISTERED AFTER 2 AND 6 WEEKS AS A LOADING DOSE
     Route: 042
  3. INFLIXIMAB [Suspect]
     Active Substance: INFLIXIMAB
     Dosage: DOSE ESCALATION TO 5 MG/KG EVERY 6 WEEKS WAS PERMITTED
     Route: 042
  4. ADALIMUMAB [Suspect]
     Active Substance: ADALIMUMAB
     Indication: Anal fistula
     Dosage: A LOADING DOSE OF 160 MG AT THE START OF TREATMENT
     Route: 058
  5. ADALIMUMAB [Suspect]
     Active Substance: ADALIMUMAB
     Dosage: 80 MG AFTER 2 WEEKS
     Route: 058
  6. ADALIMUMAB [Suspect]
     Active Substance: ADALIMUMAB
     Dosage: 40 MG EVERY 3 WEEKS.
     Route: 058
  7. MERCAPTOPURINE [Suspect]
     Active Substance: MERCAPTOPURINE
     Indication: Anal fistula
     Dosage: 1.0-1.5MG/KG
  8. MERCAPTOPURINE [Suspect]
     Active Substance: MERCAPTOPURINE
     Indication: Anal fistula
     Dosage: 1.0-1.5MG/KG
  9. AZATHIOPRINE [Suspect]
     Active Substance: AZATHIOPRINE
     Indication: Anal fistula
     Dosage: 2.0-2.5MG/KG TABLE ONCE A DAY

REACTIONS (7)
  - Drug ineffective [Unknown]
  - Alopecia [Unknown]
  - Fatigue [Unknown]
  - Myalgia [Unknown]
  - Pruritus [Unknown]
  - Rash [Unknown]
  - Headache [Unknown]
